FAERS Safety Report 4470176-9 (Version None)
Quarter: 2004Q3

REPORT INFORMATION
  Report Type: 
  Country: None (occurrence: None)
  Receive Date: 20040910
  Receipt Date: 20040804
  Transmission Date: 20050211
  Serious: No
  Sender: FDA-Public Use
  Company Number: 2004227220US

PATIENT
  Age: 51 Year
  Sex: Female

DRUGS (1)
  1. BEXTRA [Suspect]
     Dates: start: 20040701

REACTIONS (3)
  - DIFFICULTY IN WALKING [None]
  - DRUG INEFFECTIVE [None]
  - SWELLING [None]
